FAERS Safety Report 14773778 (Version 2)
Quarter: 2020Q2

REPORT INFORMATION
  Report Type: Spontaneous
  Country: CA (occurrence: CA)
  Receive Date: 20180418
  Receipt Date: 20200512
  Transmission Date: 20200713
  Serious: Yes (Other)
  Sender: FDA-Public Use
  Company Number: CA-BAYER-2018-073605

PATIENT
  Age: 78 Year
  Sex: Male

DRUGS (2)
  1. RESTORALAX [Suspect]
     Active Substance: POLYETHYLENE GLYCOL 3350
     Dosage: UNK
  2. RESTORALAX [Suspect]
     Active Substance: POLYETHYLENE GLYCOL 3350
     Dosage: UNK

REACTIONS (5)
  - Poor quality product administered [None]
  - Product solubility abnormal [None]
  - Choking [None]
  - Product taste abnormal [None]
  - Product contamination physical [None]

NARRATIVE: CASE EVENT DATE: 202005
